FAERS Safety Report 8420176-9 (Version None)
Quarter: 2012Q2

REPORT INFORMATION
  Report Type: 
  Country: None (occurrence: None)
  Receive Date: 20120323
  Receipt Date: 20111209
  Transmission Date: 20120825
  Serious: Yes (Other)
  Sender: FDA-Public Use
  Company Number: 163-21880-11121304

PATIENT
  Age: 50 Year
  Sex: Male
  Weight: 97.5 kg

DRUGS (7)
  1. FLAXSEED OIL (LINSEED OIL) [Concomitant]
  2. VITAMIN D [Concomitant]
  3. REVLIMID [Suspect]
     Indication: LYMPHOMA
     Dosage: 20 MG, 4 IN 1 D, PO ; 15 MG, 3 IN 1 D, PO
     Route: 048
     Dates: start: 20111201
  4. REVLIMID [Suspect]
     Indication: LYMPHOMA
     Dosage: 20 MG, 4 IN 1 D, PO ; 15 MG, 3 IN 1 D, PO
     Route: 048
     Dates: start: 20110701, end: 20111122
  5. MULTIVITAMIN [Concomitant]
  6. VITAMIN B COMPLEX (B-KOMPLEX ^LECIVA^) [Concomitant]
  7. ZYRTEC [Concomitant]

REACTIONS (2)
  - RASH GENERALISED [None]
  - RASH [None]
